FAERS Safety Report 14349904 (Version 1)
Quarter: 2018Q1

REPORT INFORMATION
  Report Type: Spontaneous
  Country: US (occurrence: US)
  Receive Date: 20180104
  Receipt Date: 20180104
  Transmission Date: 20180509
  Serious: No
  Sender: FDA-Public Use
  Company Number: US-DRREDDYS-USA/USA/17/0090719

PATIENT
  Age: 60 Year
  Sex: Male
  Weight: 106.59 kg

DRUGS (1)
  1. NICOTINE. [Suspect]
     Active Substance: NICOTINE
     Indication: SMOKING CESSATION THERAPY
     Route: 062
     Dates: start: 20170510, end: 20170523

REACTIONS (4)
  - Headache [Recovered/Resolved]
  - Nicotine dependence [Not Recovered/Not Resolved]
  - Application site irritation [Recovered/Resolved]
  - Product quality issue [Unknown]
